FAERS Safety Report 20049122 (Version 2)
Quarter: 2021Q4

REPORT INFORMATION
  Report Type: Report from Study
  Country: CA (occurrence: CA)
  Receive Date: 20211109
  Receipt Date: 20211130
  Transmission Date: 20220303
  Serious: Yes (Disabling)
  Sender: FDA-Public Use
  Company Number: CA-SA-2019SA325228

PATIENT
  Age: 38 Year
  Sex: Female

DRUGS (6)
  1. TERIFLUNOMIDE [Suspect]
     Active Substance: TERIFLUNOMIDE
     Indication: Relapsing-remitting multiple sclerosis
     Dosage: 14 MG, QD
     Route: 048
     Dates: start: 20191111
  2. VITAMIN D NOS [Concomitant]
     Active Substance: VITAMIN D NOS
     Dosage: 2000 IU, QD
     Route: 048
  3. ESOMEPRAZOLE [ESOMEPRAZOLE SODIUM] [Concomitant]
     Dosage: UNK
     Route: 048
  4. SYNTHROID [Concomitant]
     Active Substance: LEVOTHYROXINE SODIUM
     Dosage: UNK
     Route: 048
  5. WELLBUTRIN [Concomitant]
     Active Substance: BUPROPION HYDROCHLORIDE
     Dosage: UNK
     Route: 048
  6. ESOMEPRAZOLE [Concomitant]
     Active Substance: ESOMEPRAZOLE
     Dosage: UNK

REACTIONS (5)
  - Impaired work ability [Not Recovered/Not Resolved]
  - Malformation venous [Not Recovered/Not Resolved]
  - Vomiting [Not Recovered/Not Resolved]
  - Headache [Not Recovered/Not Resolved]
  - Nausea [Not Recovered/Not Resolved]

NARRATIVE: CASE EVENT DATE: 20191101
